FAERS Safety Report 6579496-5 (Version None)
Quarter: 2010Q1

REPORT INFORMATION
  Report Type: 
  Country: None (occurrence: None)
  Receive Date: 20100212
  Receipt Date: 20100202
  Transmission Date: 20100710
  Serious: Yes (Other)
  Sender: FDA-Public Use
  Company Number: JP-BRACCO-003136

PATIENT
  Age: 84 Year
  Sex: Female

DRUGS (1)
  1. IOPAMIDOL [Suspect]
     Indication: CARDIAC IMAGING PROCEDURE
     Route: 042
     Dates: start: 20091201, end: 20091201

REACTIONS (1)
  - BLOOD CREATININE INCREASED [None]
